FAERS Safety Report 20831902 (Version 1)
Quarter: 2022Q2

REPORT INFORMATION
  Report Type: Spontaneous
  Country: IT (occurrence: IT)
  Receive Date: 20220516
  Receipt Date: 20220516
  Transmission Date: 20220721
  Serious: Yes (Hospitalization)
  Sender: FDA-Public Use
  Company Number: IT-MINISAL02-864436

PATIENT
  Age: 52 Year
  Sex: Female
  Weight: 74 kg

DRUGS (4)
  1. KETOROLAC [Suspect]
     Active Substance: KETOROLAC TROMETHAMINE
     Indication: Pain
     Dosage: 30 MILLIGRAM TOTAL
     Route: 042
     Dates: start: 20220420, end: 20220420
  2. PANTOPRAZOLE [Suspect]
     Active Substance: PANTOPRAZOLE
     Indication: Gastritis prophylaxis
     Dosage: 40 MILLIGRAM TOTAL
     Route: 042
     Dates: start: 20220420, end: 20220420
  3. CEFAZOLIN [Suspect]
     Active Substance: CEFAZOLIN
     Indication: Antibiotic prophylaxis
     Dosage: 2 GRAM  TOTAL
     Route: 042
     Dates: start: 20220420, end: 20220420
  4. MIDAZOLAM [Concomitant]
     Active Substance: MIDAZOLAM
     Indication: Anxiety
     Dosage: 1 MILLIGRAM
     Route: 042
     Dates: start: 20220420, end: 20220420

REACTIONS (3)
  - Urticaria [Recovering/Resolving]
  - Erythema [Recovering/Resolving]
  - Eyelid oedema [Recovering/Resolving]

NARRATIVE: CASE EVENT DATE: 20220420
